FAERS Safety Report 8870591 (Version 1)
Quarter: 2012Q4

REPORT INFORMATION
  Report Type: 
  Country: US (occurrence: US)
  Receive Date: 20121026
  Receipt Date: 20121026
  Transmission Date: 20130627
  Serious: No
  Sender: FDA-Public Use
  Company Number: US-AMGEN-USASP2012046983

PATIENT
  Age: 55 Year
  Sex: Male

DRUGS (2)
  1. ENBREL [Suspect]
     Indication: PSORIATIC ARTHROPATHY
     Dosage: 50 mg, qwk
     Dates: start: 20120702
  2. ENBREL [Suspect]
     Indication: PSORIASIS

REACTIONS (6)
  - Lethargy [Unknown]
  - Dyspnoea [Unknown]
  - Asthenia [Unknown]
  - Feeling abnormal [Unknown]
  - Fatigue [Unknown]
  - Defaecation urgency [Recovered/Resolved]
